FAERS Safety Report 19416444 (Version 1)
Quarter: 2021Q2

REPORT INFORMATION
  Report Type: Spontaneous
  Country: US (occurrence: US)
  Receive Date: 20210614
  Receipt Date: 20210614
  Transmission Date: 20210717
  Serious: No
  Sender: FDA-Public Use
  Company Number: US-MAYNE PHARMA-2020MYN000523

PATIENT
  Age: 18 Year
  Sex: Female

DRUGS (1)
  1. SRONYX [Suspect]
     Active Substance: ETHINYL ESTRADIOL\LEVONORGESTREL
     Indication: MENSTRUAL CYCLE MANAGEMENT
     Dosage: UNK, QD
     Route: 048
     Dates: start: 202009

REACTIONS (2)
  - Abdominal pain upper [Unknown]
  - Nausea [Unknown]
